FAERS Safety Report 7398111-4 (Version None)
Quarter: 2011Q2

REPORT INFORMATION
  Report Type: 
  Country: None (occurrence: None)
  Receive Date: 20110406
  Receipt Date: 20080722
  Transmission Date: 20111010
  Serious: Yes (Other)
  Sender: FDA-Public Use
  Company Number: DE-GENENTECH-316252

PATIENT
  Age: 79 Year
  Sex: Male

DRUGS (1)
  1. LUCENTIS [Suspect]
     Indication: MACULAR DEGENERATION
     Dosage: UNK
     Route: 031
     Dates: start: 20080630

REACTIONS (5)
  - BRONCHITIS [None]
  - BLINDNESS UNILATERAL [None]
  - VISUAL ACUITY REDUCED [None]
  - CATARACT [None]
  - EYE INFLAMMATION [None]
